FAERS Safety Report 7472330-0 (Version None)
Quarter: 2011Q2

REPORT INFORMATION
  Report Type: 
  Country: None (occurrence: None)
  Receive Date: 20110511
  Receipt Date: 20110427
  Transmission Date: 20111010
  Serious: Yes (Life-Threatening, Hospitalization)
  Sender: FDA-Public Use
  Company Number: ES-SANOFI-AVENTIS-2011SA028698

PATIENT
  Age: 86 Year
  Sex: Female

DRUGS (10)
  1. ENOXAPARIN [Concomitant]
  2. MINIRIN [Suspect]
     Indication: PROPHYLAXIS
     Route: 051
     Dates: start: 20110127, end: 20110127
  3. SINTROM [Concomitant]
  4. IRBESARTAN [Concomitant]
  5. ACETAMINOPHEN [Concomitant]
  6. OMEPRAZOLE [Concomitant]
  7. TORSEMIDE [Concomitant]
  8. ALLOPURINOL [Concomitant]
  9. BISOPROLOL [Concomitant]
  10. METOCLOPRAMIDE [Concomitant]
     Route: 065
     Dates: start: 20110127, end: 20110127

REACTIONS (2)
  - CARDIAC FAILURE [None]
  - HYPERTENSION [None]
